FAERS Safety Report 8304456-3 (Version None)
Quarter: 2012Q2

REPORT INFORMATION
  Report Type: 
  Country: None (occurrence: None)
  Receive Date: 20120423
  Receipt Date: 20120410
  Transmission Date: 20120825
  Serious: No
  Sender: FDA-Public Use
  Company Number: US-ROXANE LABORATORIES, INC.-2012-RO-01036RO

PATIENT
  Sex: Female

DRUGS (2)
  1. WARFARIN SODIUM [Concomitant]
  2. FLECAINIDE ACETATE [Suspect]
     Indication: ATRIAL FIBRILLATION
     Dosage: 200 MG
     Route: 048

REACTIONS (2)
  - PALPITATIONS [None]
  - DYSPNOEA [None]
